FAERS Safety Report 10037724 (Version 1)
Quarter: 2014Q1

REPORT INFORMATION
  Report Type: Spontaneous
  Country: US (occurrence: None)
  Receive Date: 20140324
  Receipt Date: 20140324
  Transmission Date: 20141002
  Serious: Yes (Hospitalization)
  Sender: FDA-Public Use
  Company Number: COM-002055

PATIENT
  Age: 58 Year
  Sex: Female
  Weight: 61.24 kg

DRUGS (6)
  1. PRAVASTATIN [Concomitant]
  2. TEKTURNA [Concomitant]
  3. LISINOPRIL [Concomitant]
  4. ACETAMINOPHEN 250MG/ASPIRIN 250MG/CAFFEINE 65MG [Suspect]
     Indication: MIGRAINE
     Dosage: 2 CAPLETS, EVERY SIX HOUR
     Dates: start: 20140303, end: 20140304
  5. NEXIUM [Concomitant]
  6. METOPROLOL [Concomitant]

REACTIONS (13)
  - Mouth haemorrhage [None]
  - Blood pressure increased [None]
  - Epistaxis [None]
  - Malaise [None]
  - Confusional state [None]
  - Pain [None]
  - Abdominal pain upper [None]
  - Pain in extremity [None]
  - Pain in extremity [None]
  - Faeces discoloured [None]
  - Memory impairment [None]
  - Asthenia [None]
  - Headache [None]
